FAERS Safety Report 22531438 (Version 1)
Quarter: 2023Q2

REPORT INFORMATION
  Report Type: Report from Study
  Country: US (occurrence: US)
  Receive Date: 20230607
  Receipt Date: 20230607
  Transmission Date: 20230722
  Serious: Yes (Hospitalization)
  Sender: FDA-Public Use
  Company Number: US-MYLANLABS-2023M1058716

PATIENT
  Age: 43 Year
  Sex: Male

DRUGS (1)
  1. CLOZAPINE [Suspect]
     Active Substance: CLOZAPINE
     Indication: Product used for unknown indication
     Dosage: UNK
     Route: 065

REACTIONS (4)
  - Hospitalisation [Unknown]
  - Red cell distribution width increased [Recovering/Resolving]
  - Mean cell haemoglobin decreased [Recovering/Resolving]
  - Mean cell haemoglobin concentration decreased [Recovering/Resolving]

NARRATIVE: CASE EVENT DATE: 20230501
